FAERS Safety Report 12092722 (Version 1)
Quarter: 2016Q1

REPORT INFORMATION
  Report Type: Spontaneous
  Country: US (occurrence: US)
  Receive Date: 20160219
  Receipt Date: 20160219
  Transmission Date: 20160526
  Serious: Yes (Hospitalization, Other)
  Sender: FDA-Public Use
  Company Number: US-PAR PHARMACEUTICAL COMPANIES-2016SCPR015180

PATIENT

DRUGS (1)
  1. ADRENALIN [Suspect]
     Active Substance: EPINEPHRINE
     Indication: JOINT IRRIGATION
     Dosage: 1 MG/L, IN EVERY 3000 ML BAG, UNKNOWN
     Route: 014

REACTIONS (4)
  - Venous intravasation [Unknown]
  - Acute pulmonary oedema [Recovered/Resolved]
  - Product use issue [Unknown]
  - Blood pressure increased [Recovered/Resolved]
